FAERS Safety Report 7604497-5 (Version None)
Quarter: 2011Q3

REPORT INFORMATION
  Report Type: 
  Country: None (occurrence: None)
  Receive Date: 20110712
  Receipt Date: 20110705
  Transmission Date: 20111222
  Serious: Yes (Other)
  Sender: FDA-Public Use
  Company Number: CA-UCBSA-031256

PATIENT
  Sex: Male

DRUGS (3)
  1. CIMZIA [Suspect]
     Route: 058
  2. CIMZIA [Suspect]
     Indication: CROHN'S DISEASE
     Dosage: C87085
     Route: 058
  3. CIMZIA [Suspect]
     Dosage: WEEK 0, 2 AND 4
     Route: 058

REACTIONS (1)
  - PNEUMONIA [None]
